FAERS Safety Report 12541431 (Version 2)
Quarter: 2016Q3

REPORT INFORMATION
  Report Type: Spontaneous
  Country: JP (occurrence: JP)
  Receive Date: 20160708
  Receipt Date: 20160722
  Transmission Date: 20161109
  Serious: Yes (Death)
  Sender: FDA-Public Use
  Company Number: JP-009507513-1606JPN000472

PATIENT
  Age: 84 Year
  Sex: Female

DRUGS (4)
  1. BELSOMRA [Suspect]
     Active Substance: SUVOREXANT
     Indication: INSOMNIA
     Dosage: 15 MG, QD
     Route: 048
     Dates: start: 201605, end: 201605
  2. FUROSEMIDE. [Concomitant]
     Active Substance: FUROSEMIDE
     Indication: OEDEMA
     Dosage: 20 MG, QD
     Route: 048
  3. LEVOFLOXACIN. [Concomitant]
     Active Substance: LEVOFLOXACIN
     Indication: INFECTION
     Dosage: DAILY DOSE UNKNOWN
     Route: 048
  4. LAC-B [Concomitant]
     Active Substance: BIFIDOBACTERIUM SPP.
     Indication: GASTROINTESTINAL DISORDER THERAPY
     Dosage: DAILY DOSE UNKNOWN, FORMULATION: FGR
     Route: 048

REACTIONS (3)
  - Hyperhidrosis [Unknown]
  - Condition aggravated [Fatal]
  - Cold sweat [Unknown]

NARRATIVE: CASE EVENT DATE: 201605
